FAERS Safety Report 12004935 (Version 1)
Quarter: 2016Q1

REPORT INFORMATION
  Report Type: Spontaneous
  Country: IN (occurrence: IN)
  Receive Date: 20160204
  Receipt Date: 20160204
  Transmission Date: 20160526
  Serious: Yes (Death, Congenital Anomaly)
  Sender: FDA-Public Use
  Company Number: IN-FRESENIUS KABI-FK201600566

PATIENT

DRUGS (1)
  1. LEVETIRACETAM (MANUFACTURER UNKNOWN) [Suspect]
     Active Substance: LEVETIRACETAM
     Indication: EPILEPSY
     Route: 065

REACTIONS (3)
  - Foetal exposure during pregnancy [Fatal]
  - Maternal drugs affecting foetus [Fatal]
  - Anencephaly [Fatal]
